FAERS Safety Report 5524750-9 (Version None)
Quarter: 2007Q4

REPORT INFORMATION
  Report Type: 
  Country: None (occurrence: None)
  Receive Date: 20071123
  Receipt Date: 20071114
  Transmission Date: 20080405
  Serious: Yes (Death, Other)
  Sender: FDA-Public Use
  Company Number: PHBS2007JP19064

PATIENT
  Age: 6 Year
  Sex: Male

DRUGS (2)
  1. CYCLOSPORINE [Suspect]
     Indication: DERMATOMYOSITIS
     Route: 065
  2. METHYLPREDNISOLONE [Suspect]
     Indication: DERMATOMYOSITIS

REACTIONS (4)
  - GLAUCOMA [None]
  - PNEUMOMEDIASTINUM [None]
  - RESPIRATORY DISORDER [None]
  - SUBCUTANEOUS EMPHYSEMA [None]
